FAERS Safety Report 6600986-0 (Version None)
Quarter: 2010Q1

REPORT INFORMATION
  Report Type: 
  Country: None (occurrence: None)
  Receive Date: 20100225
  Receipt Date: 20100209
  Transmission Date: 20100710
  Serious: Yes (Other)
  Sender: FDA-Public Use
  Company Number: US-BAYER-201013668NA

PATIENT
  Age: 30 Year
  Sex: Female

DRUGS (1)
  1. MIRENA [Suspect]
     Indication: DRUG USE FOR UNKNOWN INDICATION
     Dosage: FREQUENCY:CONTINUOUS
     Route: 015
     Dates: start: 20090401

REACTIONS (4)
  - ECTOPIC PREGNANCY [None]
  - MUSCULOSKELETAL PAIN [None]
  - PAIN [None]
  - UTERINE PERFORATION [None]
